FAERS Safety Report 8791113 (Version 1)
Quarter: 2012Q4

REPORT INFORMATION
  Report Type: Spontaneous
  Country: US (occurrence: None)
  Receive Date: 20120913
  Receipt Date: 20120913
  Transmission Date: 20130627
  Serious: Yes (Disabling)
  Sender: FDA-Public Use
  Company Number: None

PATIENT
  Sex: Female
  Weight: 69.4 kg

DRUGS (2)
  1. FLUTICASON PROPION [Suspect]
     Indication: SINUS DISORDER
     Dosage: 200 mcg-2 sprays- each nostril daily Nasal
  2. FLUTICASON PROPION [Suspect]
     Indication: MULTIPLE ALLERGIES
     Dosage: 200 mcg-2 sprays- each nostril daily Nasal

REACTIONS (4)
  - Ageusia [None]
  - Glossodynia [None]
  - Hypoaesthesia oral [None]
  - Glossodynia [None]
